FAERS Safety Report 8578668-8 (Version None)
Quarter: 2012Q3

REPORT INFORMATION
  Report Type: 
  Country: None (occurrence: None)
  Receive Date: 20120726
  Receipt Date: 20120711
  Transmission Date: 20120928
  Serious: Yes (Death, Life-Threatening, Other)
  Sender: FDA-Public Use
  Company Number: 2012MA008618

PATIENT
  Age: 51 Year
  Sex: Female

DRUGS (5)
  1. ETHANOL [Suspect]
     Dosage: PO
     Route: 048
     Dates: end: 20100101
  2. CITALOPRAM HYDROBROMIDE [Concomitant]
  3. ALPRAZOLAM [Concomitant]
  4. METOPROLOL TARTRATE [Concomitant]
  5. FENTANYL CITRATE [Suspect]
     Dosage: PO
     Route: 048
     Dates: end: 20100101

REACTIONS (19)
  - TOXICITY TO VARIOUS AGENTS [None]
  - HAEMOGLOBIN DECREASED [None]
  - ALANINE AMINOTRANSFERASE INCREASED [None]
  - BLOOD GLUCOSE INCREASED [None]
  - BLOOD POTASSIUM INCREASED [None]
  - PLATELET COUNT DECREASED [None]
  - BLOOD CALCIUM INCREASED [None]
  - ACCIDENTAL DEATH [None]
  - INTENTIONAL DRUG MISUSE [None]
  - CARDIAC ARREST [None]
  - HYPOGLYCAEMIA [None]
  - POSTURING [None]
  - ALCOHOL POISONING [None]
  - UNRESPONSIVE TO STIMULI [None]
  - INCORRECT ROUTE OF DRUG ADMINISTRATION [None]
  - ASPARTATE AMINOTRANSFERASE INCREASED [None]
  - BLOOD BICARBONATE DECREASED [None]
  - MYDRIASIS [None]
  - BLOOD CHLORIDE INCREASED [None]
